FAERS Safety Report 8448543-8 (Version None)
Quarter: 2012Q2

REPORT INFORMATION
  Report Type: 
  Country: None (occurrence: None)
  Receive Date: 20120619
  Receipt Date: 20120606
  Transmission Date: 20120825
  Serious: Yes (Other)
  Sender: FDA-Public Use
  Company Number: FR-FRI-1000029564

PATIENT
  Age: 46 Year
  Sex: Male

DRUGS (2)
  1. MILNACIPRAN [Suspect]
     Indication: DEPRESSION
     Dosage: 150 MG
     Route: 048
     Dates: start: 20110420, end: 20120301
  2. LEXOMIL [Concomitant]
     Dosage: 150 MG
     Route: 048
     Dates: start: 20110420, end: 20120301

REACTIONS (5)
  - DYSAESTHESIA [None]
  - SYNCOPE [None]
  - OVERDOSE [None]
  - OFF LABEL USE [None]
  - BIFASCICULAR BLOCK [None]
